FAERS Safety Report 9605222 (Version 2)
Quarter: 2013Q4

REPORT INFORMATION
  Report Type: Report from Study
  Country: US (occurrence: US)
  Receive Date: 20131008
  Receipt Date: 20131016
  Transmission Date: 20140711
  Serious: Yes (Hospitalization)
  Sender: FDA-Public Use
  Company Number: US-ACTELION-A-US2013-89638

PATIENT
  Age: 57 Year
  Sex: Female

DRUGS (2)
  1. VENTAVIS [Suspect]
     Indication: PULMONARY ARTERIAL HYPERTENSION
     Dosage: UNK
     Route: 055
  2. SILDENAFIL [Concomitant]

REACTIONS (5)
  - Bunion [Recovered/Resolved]
  - Foot deformity [Recovered/Resolved]
  - Gait disturbance [Recovered/Resolved]
  - Foot operation [Recovered/Resolved]
  - Balance disorder [Recovered/Resolved]
